FAERS Safety Report 7269174-1 (Version None)
Quarter: 2011Q1

REPORT INFORMATION
  Report Type: 
  Country: None (occurrence: None)
  Receive Date: 20110202
  Receipt Date: 20101116
  Transmission Date: 20110831
  Serious: Yes (Other)
  Sender: FDA-Public Use
  Company Number: GB-B.I. PHARMACEUTICALS,INC./RIDGEFIELD-2010-UK-01054UK

PATIENT
  Sex: Female

DRUGS (7)
  1. PRADAXA [Suspect]
     Indication: THROMBOSIS PROPHYLAXIS
     Dosage: 220 MG
     Route: 048
     Dates: start: 20100909, end: 20100919
  2. ACETAMINOPHEN [Concomitant]
     Dosage: 4 G
     Route: 048
     Dates: start: 20100904
  3. LACTULOSE [Concomitant]
     Dosage: 13.4 G
     Route: 048
     Dates: start: 20100904
  4. DALTEPARIN SODIUM [Concomitant]
     Dosage: 5000 RT
  5. CODEINE SULFATE [Concomitant]
     Dosage: 90 MG
     Route: 048
     Dates: start: 20100904
  6. OMEPRAZOLE [Concomitant]
     Dosage: 20 MG
     Route: 048
     Dates: start: 20100904
  7. SENNA [Concomitant]
     Dosage: 15 MG
     Route: 048
     Dates: start: 20100904

REACTIONS (3)
  - DEEP VEIN THROMBOSIS [None]
  - DRUG INEFFECTIVE [None]
  - GAMMA-GLUTAMYLTRANSFERASE INCREASED [None]
